FAERS Safety Report 9775889 (Version 2)
Quarter: 2014Q1

REPORT INFORMATION
  Report Type: Spontaneous
  Country: CN (occurrence: CN)
  Receive Date: 20131220
  Receipt Date: 20140102
  Transmission Date: 20141002
  Serious: Yes (Death, Hospitalization)
  Sender: FDA-Public Use
  Company Number: CN-GLAXOSMITHKLINE-B0953956A

PATIENT
  Age: 51 Year
  Sex: Male

DRUGS (2)
  1. LAMIVUDINE-HBV [Suspect]
     Indication: HEPATITIS B
     Dosage: 100MG PER DAY
     Route: 048
     Dates: start: 20051212
  2. ADEFOVIR DIPIVOXIL [Suspect]
     Indication: HEPATITIS B
     Route: 048

REACTIONS (17)
  - Drug resistance [Fatal]
  - Hepatitis [Fatal]
  - Hepatic failure [Unknown]
  - Hepatic encephalopathy [Unknown]
  - Shock [Unknown]
  - Viral mutation identified [Unknown]
  - Fatigue [Unknown]
  - Decreased appetite [Unknown]
  - Chromaturia [Unknown]
  - Nausea [Unknown]
  - Vomiting [Unknown]
  - Abdominal distension [Unknown]
  - Oliguria [Unknown]
  - Apathy [Unknown]
  - Cognitive disorder [Unknown]
  - Asterixis [Unknown]
  - Loss of consciousness [Unknown]
